FAERS Safety Report 8107903-5 (Version None)
Quarter: 2012Q1

REPORT INFORMATION
  Report Type: 
  Country: None (occurrence: None)
  Receive Date: 20120202
  Receipt Date: 20120123
  Transmission Date: 20120608
  Serious: Yes (Hospitalization)
  Sender: FDA-Public Use
  Company Number: KR-PFIZER INC-2010022261

PATIENT
  Age: 71 Year
  Sex: Male
  Weight: 68 kg

DRUGS (8)
  1. CELECOXIB [Concomitant]
     Indication: PAIN
     Dosage: 200 MG, 2X/DAY
     Route: 048
     Dates: start: 20090717
  2. SUNITINIB MALATE [Suspect]
     Indication: PROSTATE CANCER
     Dosage: 37.5 MG, 1X/DAY
     Route: 048
     Dates: start: 20100111, end: 20100207
  3. MEDILAC-S [Concomitant]
     Indication: DIARRHOEA
     Dosage: 1 TABLET, AS NEEDED
     Dates: start: 20100118
  4. PREDNISOLONE [Suspect]
     Indication: PROSTATE CANCER
     Dosage: 5 MG, 2X/DAY
     Route: 048
     Dates: start: 20100111, end: 20100207
  5. TAMSULOSIN [Concomitant]
     Indication: PROSTATE CANCER
     Dosage: 0.2 MG, 1X/DAY
     Route: 048
     Dates: start: 20080628
  6. CAROVERINE [Concomitant]
     Indication: DIARRHOEA
     Dosage: 1 TABLET, AS NEEDED
     Route: 048
     Dates: start: 20100118
  7. TRIMEBUTINE [Concomitant]
     Indication: DIARRHOEA
     Dosage: 1 TABLET, AS NEEDED
     Route: 048
     Dates: start: 20100118
  8. DOMPERIDONE [Concomitant]
     Indication: DIARRHOEA
     Dosage: 1 TABLET, AS NEEDED
     Route: 048
     Dates: start: 20100118

REACTIONS (5)
  - RENAL FAILURE ACUTE [None]
  - BONE PAIN [None]
  - DYSURIA [None]
  - HAEMATURIA [None]
  - ASTHENIA [None]
